FAERS Safety Report 23161562 (Version 1)
Quarter: 2023Q4

REPORT INFORMATION
  Report Type: Report from Study
  Country: GB (occurrence: GB)
  Receive Date: 20231108
  Receipt Date: 20231108
  Transmission Date: 20240110
  Serious: Yes (Other)
  Sender: FDA-Public Use
  Company Number: GB-JNJFOC-20231077759

PATIENT

DRUGS (1)
  1. TOPAMAX [Suspect]
     Active Substance: TOPIRAMATE
     Indication: Small fibre neuropathy
     Dosage: ADDITIONAL DOSES WERE ADDED EVERY 4 DAYS TO ACHIEVE A DOSAGE OF 100 MG PER DAY.
     Route: 048

REACTIONS (37)
  - Sjogren^s syndrome [Unknown]
  - Adverse event [Unknown]
  - Diarrhoea [Unknown]
  - Fatigue [Unknown]
  - Upper respiratory tract infection [Unknown]
  - Fall [Unknown]
  - Arthralgia [Unknown]
  - Arthritis [Unknown]
  - Back pain [Unknown]
  - Bone pain [Unknown]
  - Bursa disorder [Unknown]
  - Flank pain [Unknown]
  - Groin pain [Unknown]
  - Intervertebral disc protrusion [Unknown]
  - Joint swelling [Unknown]
  - Muscle twitching [Unknown]
  - Musculoskeletal pain [Unknown]
  - Myalgia [Unknown]
  - Neck pain [Unknown]
  - Osteoporosis [Unknown]
  - Pain in extremity [Unknown]
  - Rotator cuff syndrome [Unknown]
  - Cognitive disorder [Unknown]
  - Dysgeusia [Unknown]
  - Paraesthesia [Unknown]
  - Alopecia [Unknown]
  - Dermal cyst [Unknown]
  - Dermatitis contact [Unknown]
  - Eczema [Unknown]
  - Hypohidrosis [Unknown]
  - Onychomadesis [Unknown]
  - Palmar-plantar erythrodysaesthesia syndrome [Unknown]
  - Rash [Unknown]
  - Rash pruritic [Unknown]
  - Drug intolerance [Unknown]
  - Off label use [Unknown]
  - Treatment noncompliance [Unknown]
